FAERS Safety Report 8797385 (Version 2)
Quarter: 2012Q4

REPORT INFORMATION
  Report Type: 
  Country: US (occurrence: US)
  Receive Date: 20120920
  Receipt Date: 20121001
  Transmission Date: 20130627
  Serious: Yes (Other)
  Sender: FDA-Public Use
  Company Number: US-PFIZER INC-2012232208

PATIENT
  Age: 42 Year
  Sex: Female
  Weight: 81.63 kg

DRUGS (11)
  1. LYRICA [Suspect]
     Indication: FIBROMYALGIA
     Dosage: UNK
     Dates: start: 20120202
  2. LYRICA [Suspect]
     Dosage: 150 mg, daily
     Dates: start: 201104
  3. LYRICA [Suspect]
     Dosage: 450 mg, Daily
  4. LYRICA [Suspect]
     Dosage: 300 mg, 1x/day
  5. HYDROCODONE [Concomitant]
     Indication: BREAKTHROUGH PAIN
     Dosage: 10/325mg three times a day
  6. ORPHENADRINE [Concomitant]
     Indication: MUSCLE SPASMS
     Dosage: 10 mg, 3x/day
  7. ORPHENADRINE [Concomitant]
     Indication: MUSCLE SPASMS
  8. ORPHENADRINE [Concomitant]
     Indication: FIBROMYALGIA
  9. IBUPROFEN [Concomitant]
     Indication: BREAKTHROUGH PAIN
     Dosage: 200 mg, as needed
  10. MAGNESIUM [Concomitant]
     Indication: SUPPLEMENTATION THERAPY
     Dosage: 250 mg, daily
  11. VITAMIN D3 [Concomitant]
     Indication: SUPPLEMENTATION THERAPY
     Dosage: 1000 IU, daily

REACTIONS (3)
  - Activities of daily living impaired [Unknown]
  - Dizziness [Unknown]
  - Weight increased [Unknown]
